FAERS Safety Report 19969238 (Version 2)
Quarter: 2021Q4

REPORT INFORMATION
  Report Type: Spontaneous
  Country: RU (occurrence: RU)
  Receive Date: 20211019
  Receipt Date: 20211026
  Transmission Date: 20220303
  Serious: Yes (Other)
  Sender: FDA-Public Use
  Company Number: RU-FRESENIUS KABI-FK202111194

PATIENT
  Sex: Male
  Weight: 87 kg

DRUGS (3)
  1. ETOPOSIDE [Suspect]
     Active Substance: ETOPOSIDE
     Indication: Testis cancer
     Dosage: 3 COURSES OF ADJUVANT CHEMOTHERAPY
     Route: 065
     Dates: start: 201901, end: 201901
  2. CARBOPLATIN [Suspect]
     Active Substance: CARBOPLATIN
     Indication: Testis cancer
     Dosage: 3 COURSES OF ADJUVANT CHEMOTHERAPY
     Route: 065
     Dates: start: 201901, end: 201903
  3. BLEOMYCIN [Suspect]
     Active Substance: BLEOMYCIN SULFATE
     Indication: Testis cancer
     Dosage: 3 COURSES OF ADJUVANT CHEMOTHERAPY
     Route: 065
     Dates: start: 201901, end: 201903

REACTIONS (4)
  - Weight decreased [Unknown]
  - Nausea [Unknown]
  - Vomiting [Unknown]
  - Decreased appetite [Unknown]
